FAERS Safety Report 15802498 (Version 1)
Quarter: 2019Q1

REPORT INFORMATION
  Report Type: Spontaneous
  Country: US (occurrence: US)
  Receive Date: 20190107
  Receipt Date: 20190107
  Transmission Date: 20190417
  Serious: Yes (Life-Threatening, Hospitalization, Disabling, Other)
  Sender: FDA-Public Use
  Company Number: None

PATIENT
  Age: 27 Year
  Sex: Male
  Weight: 81 kg

DRUGS (5)
  1. KETAMINE [Suspect]
     Active Substance: KETAMINE
     Indication: FEAR
     Dosage: ?          QUANTITY:6 SPRAY(S);OTHER FREQUENCY:EIGHT TIMES A DAY;OTHER ROUTE:NASAL?
     Dates: start: 20180601, end: 20190101
  2. KETAMINE [Suspect]
     Active Substance: KETAMINE
     Indication: PARANOIA
     Dosage: ?          QUANTITY:6 SPRAY(S);OTHER FREQUENCY:EIGHT TIMES A DAY;OTHER ROUTE:NASAL?
     Dates: start: 20180601, end: 20190101
  3. KETAMINE [Suspect]
     Active Substance: KETAMINE
     Indication: ATTENTION DEFICIT/HYPERACTIVITY DISORDER
     Dosage: ?          QUANTITY:6 SPRAY(S);OTHER FREQUENCY:EIGHT TIMES A DAY;OTHER ROUTE:NASAL?
     Dates: start: 20180601, end: 20190101
  4. KETAMINE [Suspect]
     Active Substance: KETAMINE
     Indication: POST-TRAUMATIC STRESS DISORDER
     Dosage: ?          QUANTITY:6 SPRAY(S);OTHER FREQUENCY:EIGHT TIMES A DAY;OTHER ROUTE:NASAL?
     Dates: start: 20180601, end: 20190101
  5. KETAMINE [Suspect]
     Active Substance: KETAMINE
     Indication: PAIN
     Dosage: ?          QUANTITY:6 SPRAY(S);OTHER FREQUENCY:EIGHT TIMES A DAY;OTHER ROUTE:NASAL?
     Dates: start: 20180601, end: 20190101

REACTIONS (11)
  - Anger [None]
  - Fatigue [None]
  - Erectile dysfunction [None]
  - Sinusitis [None]
  - Depressed mood [None]
  - Swelling face [None]
  - Headache [None]
  - Hormone level abnormal [None]
  - Body fat disorder [None]
  - Cognitive disorder [None]
  - Emotional distress [None]

NARRATIVE: CASE EVENT DATE: 20181222
